FAERS Safety Report 23505197 (Version 1)
Quarter: 2024Q1

REPORT INFORMATION
  Report Type: Spontaneous
  Country: US (occurrence: US)
  Receive Date: 20240209
  Receipt Date: 20240209
  Transmission Date: 20240409
  Serious: Yes (Other)
  Sender: FDA-Public Use
  Company Number: US-ALKEM LABORATORIES LIMITED-US-ALKEM-2023-12917

PATIENT
  Age: 41 Year
  Sex: Female

DRUGS (11)
  1. ASPIRIN [Suspect]
     Active Substance: ASPIRIN
     Indication: Product used for unknown indication
     Dosage: 650 MILLIGRAM, BID (TWICE PER DAY)
     Route: 065
  2. ASPIRIN [Suspect]
     Active Substance: ASPIRIN
     Dosage: UNK (HIGH DOSE)
     Route: 065
  3. ASPIRIN [Suspect]
     Active Substance: ASPIRIN
     Dosage: 325 MILLIGRAM, BID (TWICE PER DAY)
     Route: 065
  4. ATORVASTATIN CALCIUM [Suspect]
     Active Substance: ATORVASTATIN CALCIUM
     Indication: Cardiomyopathy
     Dosage: UNK
     Route: 065
  5. ATORVASTATIN CALCIUM [Suspect]
     Active Substance: ATORVASTATIN CALCIUM
     Indication: Chest pain
  6. DILTIAZEM [Suspect]
     Active Substance: DILTIAZEM
     Indication: Cardiomyopathy
     Dosage: UNK
     Route: 065
  7. DILTIAZEM [Suspect]
     Active Substance: DILTIAZEM
     Indication: Chest pain
  8. LISINOPRIL [Suspect]
     Active Substance: LISINOPRIL
     Indication: Cardiomyopathy
     Dosage: UNK
     Route: 065
  9. LISINOPRIL [Suspect]
     Active Substance: LISINOPRIL
     Indication: Chest pain
  10. ISOSORBIDE MONONITRATE [Suspect]
     Active Substance: ISOSORBIDE MONONITRATE
     Indication: Cardiomyopathy
     Dosage: UNK
     Route: 065
  11. ISOSORBIDE MONONITRATE [Suspect]
     Active Substance: ISOSORBIDE MONONITRATE
     Indication: Chest pain

REACTIONS (5)
  - NSAID exacerbated respiratory disease [Unknown]
  - Arteriospasm coronary [Recovered/Resolved]
  - Chest pain [Recovered/Resolved]
  - Eosinophilia [Recovered/Resolved]
  - Drug ineffective [Unknown]
